FAERS Safety Report 4788471-2 (Version None)
Quarter: 2005Q4

REPORT INFORMATION
  Report Type: 
  Country: None (occurrence: None)
  Receive Date: 20051005
  Receipt Date: 20051005
  Transmission Date: 20060501
  Serious: Yes (Hospitalization)
  Sender: FDA-Public Use
  Company Number: None

PATIENT
  Sex: Female
  Weight: 62.3 kg

DRUGS (1)
  1. ACETAMINOPHEN [Suspect]
     Indication: COMPLETED SUICIDE
     Dosage: 500 MG X 40
     Dates: start: 20041019

REACTIONS (5)
  - ALANINE AMINOTRANSFERASE INCREASED [None]
  - ASPARTATE AMINOTRANSFERASE INCREASED [None]
  - HEPATIC FAILURE [None]
  - OVERDOSE [None]
  - SELF INJURIOUS BEHAVIOUR [None]
